FAERS Safety Report 6179577-4 (Version None)
Quarter: 2009Q2

REPORT INFORMATION
  Report Type: 
  Country: None (occurrence: None)
  Receive Date: 20090501
  Receipt Date: 20090501
  Transmission Date: 20091009
  Serious: Yes (Other)
  Sender: FDA-Public Use
  Company Number: None

PATIENT
  Sex: Male
  Weight: 22.6799 kg

DRUGS (1)
  1. FLOVENT [Suspect]
     Indication: BRONCHIAL HYPERREACTIVITY
     Dosage: 1 PUFF DAILY PO
     Route: 048
     Dates: start: 20090315, end: 20090315

REACTIONS (1)
  - CONVULSION [None]
